FAERS Safety Report 5577429-1 (Version None)
Quarter: 2007Q4

REPORT INFORMATION
  Report Type: 
  Country: None (occurrence: None)
  Receive Date: 20071228
  Receipt Date: 20071218
  Transmission Date: 20080405
  Serious: Yes (Other)
  Sender: FDA-Public Use
  Company Number: JP-PFIZER INC-2007104414

PATIENT
  Age: 32 Year
  Sex: Male

DRUGS (5)
  1. HALCION [Suspect]
     Dosage: DAILY DOSE:.25MG
     Route: 048
  2. ZYPREXA [Concomitant]
     Route: 048
  3. SERENACE [Concomitant]
  4. AKINETON [Concomitant]
  5. WINTERMIN [Concomitant]
     Route: 048

REACTIONS (1)
  - BLOOD TRIGLYCERIDES INCREASED [None]
